FAERS Safety Report 23111933 (Version 4)
Quarter: 2024Q1

REPORT INFORMATION
  Report Type: Report from Study
  Country: JP (occurrence: JP)
  Receive Date: 20231026
  Receipt Date: 20240314
  Transmission Date: 20240409
  Serious: Yes (Death, Hospitalization)
  Sender: FDA-Public Use
  Company Number: JP-ABBVIE-21K-087-3813691-00

PATIENT
  Age: 76 Year
  Sex: Female
  Weight: 40 kg

DRUGS (5)
  1. RINVOQ [Suspect]
     Active Substance: UPADACITINIB
     Indication: Rheumatoid arthritis
     Route: 048
     Dates: start: 20200908, end: 20230208
  2. SULFASALAZINE [Concomitant]
     Active Substance: SULFASALAZINE
     Indication: Rheumatoid arthritis
  3. TACROLIMUS [Concomitant]
     Active Substance: TACROLIMUS
     Indication: Rheumatoid arthritis
  4. PREDNISOLONE [Concomitant]
     Active Substance: PREDNISOLONE
     Indication: Rheumatoid arthritis
     Dates: end: 20201104
  5. ROMOSOZUMAB [Concomitant]
     Active Substance: ROMOSOZUMAB
     Indication: Product used for unknown indication
     Route: 050

REACTIONS (2)
  - Interstitial lung disease [Fatal]
  - Dyslipidaemia [Not Recovered/Not Resolved]

NARRATIVE: CASE EVENT DATE: 20210112
